FAERS Safety Report 8247031-1 (Version None)
Quarter: 2012Q1

REPORT INFORMATION
  Report Type: 
  Country: None (occurrence: None)
  Receive Date: 20120330
  Receipt Date: 20120330
  Transmission Date: 20120608
  Serious: Yes (Disabling)
  Sender: FDA-Public Use
  Company Number: None

PATIENT
  Age: 24 Year
  Sex: Male
  Weight: 74.842 kg

DRUGS (1)
  1. PRISTIQ [Suspect]
     Indication: DEPRESSION
     Dates: start: 20051219, end: 20120316

REACTIONS (6)
  - UPPER RESPIRATORY TRACT INFECTION [None]
  - FEELING ABNORMAL [None]
  - DRUG WITHDRAWAL SYNDROME [None]
  - PARAESTHESIA [None]
  - DISCOMFORT [None]
  - GRAND MAL CONVULSION [None]
